FAERS Safety Report 13551990 (Version 1)
Quarter: 2017Q2

REPORT INFORMATION
  Report Type: Spontaneous
  Country: JP (occurrence: JP)
  Receive Date: 20170516
  Receipt Date: 20170516
  Transmission Date: 20170830
  Serious: Yes (Hospitalization)
  Sender: FDA-Public Use
  Company Number: JP-GILEAD-2017-0266924AA

PATIENT
  Age: 59 Year
  Sex: Male

DRUGS (5)
  1. REBETOL [Concomitant]
     Active Substance: RIBAVIRIN
     Dosage: 400 MG, BID, AFTER BREAKFAST AND DINNER
  2. ENALAPRIL MALEATE. [Concomitant]
     Active Substance: ENALAPRIL MALEATE
     Dosage: 5 MG, QD, AFTER BREAKFAST
  3. SOVALDI [Suspect]
     Active Substance: SOFOSBUVIR
     Indication: PRODUCT USED FOR UNKNOWN INDICATION
     Dosage: 400 MG, QD, AFTER BREAKFAST
     Route: 065
     Dates: start: 20170328
  4. FEBURIC [Concomitant]
     Active Substance: FEBUXOSTAT
     Dosage: 10 MG, QD, AFTER BREAKFAST
     Dates: start: 201703
  5. ALLOPURINOL. [Concomitant]
     Active Substance: ALLOPURINOL
     Dosage: 100 MG, UNK
     Dates: end: 201703

REACTIONS (1)
  - Gout [Recovering/Resolving]

NARRATIVE: CASE EVENT DATE: 20170404
